FAERS Safety Report 18433571 (Version 1)
Quarter: 2020Q4

REPORT INFORMATION
  Report Type: Report from Study
  Country: BR (occurrence: BR)
  Receive Date: 20201027
  Receipt Date: 20201027
  Transmission Date: 20210114
  Serious: Yes (Hospitalization)
  Sender: FDA-Public Use
  Company Number: NVSC2020BR287001

PATIENT
  Age: 38 Year
  Sex: Female

DRUGS (1)
  1. COSENTYX [Suspect]
     Active Substance: SECUKINUMAB
     Indication: PRODUCT USED FOR UNKNOWN INDICATION
     Dosage: UNK
     Route: 065
     Dates: start: 20200530, end: 20200904

REACTIONS (3)
  - Cerebral disorder [Recovering/Resolving]
  - Skin discolouration [Recovering/Resolving]
  - Oral pigmentation [Recovering/Resolving]

NARRATIVE: CASE EVENT DATE: 20200905
